FAERS Safety Report 13466146 (Version 1)
Quarter: 2017Q2

REPORT INFORMATION
  Report Type: Spontaneous
  Country: US (occurrence: US)
  Receive Date: 20170420
  Receipt Date: 20170420
  Transmission Date: 20170830
  Serious: No
  Sender: FDA-Public Use
  Company Number: None

PATIENT
  Sex: Male

DRUGS (1)
  1. SUTENT [Suspect]
     Active Substance: SUNITINIB MALATE
     Indication: RENAL CANCER
     Dosage: .1 C DAILY FOR 28 DAYS, THEN 14 DAYS OFF PO
     Route: 048
     Dates: start: 20170310

REACTIONS (2)
  - Vision blurred [None]
  - Skin irritation [None]
